FAERS Safety Report 22175002 (Version 1)
Quarter: 2023Q2

REPORT INFORMATION
  Report Type: Spontaneous
  Country: US (occurrence: None)
  Receive Date: 20230405
  Receipt Date: 20230405
  Transmission Date: 20230722
  Serious: Yes (Other)
  Sender: FDA-Public Use
  Company Number: US-FARMAPROD-202302-0543

PATIENT
  Age: 53 Year
  Sex: Female

DRUGS (14)
  1. OXERVATE [Suspect]
     Active Substance: CENEGERMIN-BKBJ
     Indication: Neurotrophic keratopathy
     Route: 047
     Dates: start: 20230111, end: 20230315
  2. COLLAGEN [Concomitant]
     Active Substance: COLLAGEN
     Dosage: 125-740 MG
  3. MELATONIN [Concomitant]
     Active Substance: MELATONIN
  4. MAGNESIUM [Concomitant]
     Active Substance: MAGNESIUM
  5. BOTOX [Concomitant]
     Active Substance: ONABOTULINUMTOXINA
     Dosage: VIAL
  6. SYMBICORT [Concomitant]
     Active Substance: BUDESONIDE\FORMOTEROL FUMARATE DIHYDRATE
     Dosage: 160-4.5 MCG, HYDROFLUOROALKANE, AEROSOL WITH ADAPTER.
  7. COLACE [Concomitant]
     Active Substance: DOCUSATE SODIUM
  8. BIOTIN [Concomitant]
     Active Substance: BIOTIN
  9. VITAMIN D3 [Concomitant]
     Active Substance: CHOLECALCIFEROL
  10. ASCORBIC ACID [Concomitant]
     Active Substance: ASCORBIC ACID
  11. CENTRUM SILVER WOMEN [Concomitant]
  12. SUCRAID [Concomitant]
     Active Substance: SACROSIDASE
  13. QULIPTA [Concomitant]
     Active Substance: ATOGEPANT
  14. LIPITOR [Concomitant]
     Active Substance: ATORVASTATIN CALCIUM

REACTIONS (6)
  - Pneumonia [Unknown]
  - Wrong technique in product usage process [Unknown]
  - Eye pain [Unknown]
  - Product administration error [Unknown]
  - Product storage error [Unknown]
  - Therapy partial responder [Unknown]

NARRATIVE: CASE EVENT DATE: 20230201
